FAERS Safety Report 11131293 (Version 1)
Quarter: 2015Q2

REPORT INFORMATION
  Report Type: Spontaneous
  Country: DE (occurrence: DE)
  Receive Date: 20150522
  Receipt Date: 20150522
  Transmission Date: 20150821
  Serious: Yes (Hospitalization)
  Sender: FDA-Public Use
  Company Number: DE-JNJFOC-20150506634

PATIENT
  Age: 22 Year
  Sex: Female

DRUGS (14)
  1. HALDOL [Suspect]
     Active Substance: HALOPERIDOL
     Indication: PRODUCT USED FOR UNKNOWN INDICATION
     Route: 048
     Dates: start: 20140902, end: 20140922
  2. ABILIFY [Interacting]
     Active Substance: ARIPIPRAZOLE
     Indication: PRODUCT USED FOR UNKNOWN INDICATION
     Route: 048
     Dates: start: 20140901, end: 20140903
  3. ABILIFY [Interacting]
     Active Substance: ARIPIPRAZOLE
     Indication: PRODUCT USED FOR UNKNOWN INDICATION
     Route: 048
     Dates: start: 20140828, end: 20140829
  4. ABILIFY [Interacting]
     Active Substance: ARIPIPRAZOLE
     Indication: PRODUCT USED FOR UNKNOWN INDICATION
     Route: 048
     Dates: start: 20140904
  5. TAVOR [Concomitant]
     Active Substance: LORAZEPAM
     Route: 048
     Dates: start: 20140917, end: 20140920
  6. TAVOR [Concomitant]
     Active Substance: LORAZEPAM
     Route: 048
     Dates: start: 20140911, end: 20140914
  7. HALDOL [Suspect]
     Active Substance: HALOPERIDOL
     Indication: PRODUCT USED FOR UNKNOWN INDICATION
     Route: 048
     Dates: start: 20140901, end: 20140901
  8. HALDOL [Suspect]
     Active Substance: HALOPERIDOL
     Indication: PRODUCT USED FOR UNKNOWN INDICATION
     Route: 048
     Dates: start: 20140923, end: 20140924
  9. TAVOR [Concomitant]
     Active Substance: LORAZEPAM
     Route: 048
     Dates: start: 20140921, end: 20140922
  10. HALDOL [Suspect]
     Active Substance: HALOPERIDOL
     Indication: PRODUCT USED FOR UNKNOWN INDICATION
     Route: 048
     Dates: start: 20140929
  11. ABILIFY [Interacting]
     Active Substance: ARIPIPRAZOLE
     Indication: PRODUCT USED FOR UNKNOWN INDICATION
     Route: 048
     Dates: start: 20140830, end: 20140831
  12. TAVOR [Concomitant]
     Active Substance: LORAZEPAM
     Route: 048
     Dates: start: 20140915, end: 20140916
  13. HALDOL [Suspect]
     Active Substance: HALOPERIDOL
     Indication: PRODUCT USED FOR UNKNOWN INDICATION
     Route: 048
     Dates: start: 20140925, end: 20140928
  14. TAVOR [Concomitant]
     Active Substance: LORAZEPAM
     Route: 048
     Dates: start: 20140902, end: 20140910

REACTIONS (2)
  - Galactorrhoea [Recovered/Resolved]
  - Drug interaction [Recovered/Resolved]

NARRATIVE: CASE EVENT DATE: 20140915
